FAERS Safety Report 5919921-3 (Version None)
Quarter: 2008Q4

REPORT INFORMATION
  Report Type: 
  Country: None (occurrence: None)
  Receive Date: 20081015
  Receipt Date: 20081009
  Transmission Date: 20090506
  Serious: Yes (Other)
  Sender: FDA-Public Use
  Company Number: NO-MERCK-0810NOR00004

PATIENT
  Age: 52 Year
  Sex: Male

DRUGS (5)
  1. ZETIA [Suspect]
     Indication: HYPERCHOLESTEROLAEMIA
     Route: 048
     Dates: start: 20080229, end: 20080401
  2. SIMVASTATIN [Concomitant]
     Indication: HYPERCHOLESTEROLAEMIA
     Route: 048
  3. WARFARIN SODIUM [Suspect]
     Indication: PROPHYLAXIS
     Route: 048
  4. METOPROLOL TARTRATE [Concomitant]
     Indication: PROPHYLAXIS
     Route: 048
  5. RAMIPRIL [Concomitant]
     Indication: PROPHYLAXIS
     Route: 048

REACTIONS (1)
  - INTERNATIONAL NORMALISED RATIO INCREASED [None]
